FAERS Safety Report 25919617 (Version 1)
Quarter: 2025Q4

REPORT INFORMATION
  Report Type: Report from Study
  Country: JP (occurrence: JP)
  Receive Date: 20251014
  Receipt Date: 20251014
  Transmission Date: 20260117
  Serious: Yes (Death)
  Sender: CSL BEHRING
  Company Number: JP-BEH-VIT-2017-13850

PATIENT
  Age: 49 Year
  Sex: Female
  Weight: 83 kg

DRUGS (19)
  1. VELPHORO [Suspect]
     Active Substance: SUCROFERRIC OXYHYDROXIDE
     Indication: Hyperphosphataemia
     Dosage: 750 MG, QD
     Route: 048
     Dates: start: 20160502, end: 20160515
  2. VELPHORO [Suspect]
     Active Substance: SUCROFERRIC OXYHYDROXIDE
     Dosage: 1500 MG, QD
     Route: 048
     Dates: start: 20160516, end: 20160605
  3. VELPHORO [Suspect]
     Active Substance: SUCROFERRIC OXYHYDROXIDE
     Dosage: 1000 MG, QD
     Route: 048
     Dates: start: 20160606, end: 20170303
  4. ERYTHROPOIETIN [Concomitant]
     Active Substance: ERYTHROPOIETIN
     Dosage: 9000,IU,QW
     Route: 065
     Dates: start: 20160415
  5. AMLODIPINE [Concomitant]
     Active Substance: AMLODIPINE BESYLATE
     Dosage: 5 MG
     Route: 048
  6. FUROSEMIDE [Concomitant]
     Active Substance: FUROSEMIDE
     Dosage: 40 MG
     Route: 048
  7. MICARDIS [Concomitant]
     Active Substance: TELMISARTAN
     Dosage: 40 MG
     Route: 048
  8. ALFAROL [Concomitant]
     Active Substance: ALFACALCIDOL
     Dosage: 0.5 ?G
     Route: 048
     Dates: start: 20160502, end: 20160803
  9. MIGLITOL [Concomitant]
     Active Substance: MIGLITOL
     Dosage: 50 MG
     Route: 048
  10. POLAPREZINC [Concomitant]
     Active Substance: POLAPREZINC
     Dosage: 75 MG
     Route: 048
     Dates: start: 20160502
  11. HUMALOG [Concomitant]
     Active Substance: INSULIN LISPRO
     Dosage: 10,IU,UNK
     Route: 065
     Dates: start: 20160429, end: 20160609
  12. HUMALOG [Concomitant]
     Active Substance: INSULIN LISPRO
     Dosage: 8,IU,UNK
     Route: 065
     Dates: start: 20160610
  13. LANTUS [Concomitant]
     Active Substance: INSULIN GLARGINE
     Dosage: 8,IU,UNK
     Route: 065
     Dates: end: 20160506
  14. LANTUS [Concomitant]
     Active Substance: INSULIN GLARGINE
     Dosage: 6,IU,UNK
     Route: 065
     Dates: start: 20160507
  15. OXAROL [Concomitant]
     Active Substance: MAXACALCITOL
     Dosage: 15,?G,UNK
     Route: 065
     Dates: start: 20160418
  16. LEVOCARNITINE HYDROCHLORIDE [Concomitant]
     Active Substance: LEVOCARNITINE HYDROCHLORIDE
     Dosage: 1000,MG,UNK
     Route: 065
     Dates: start: 20160418
  17. EURAX [Concomitant]
     Active Substance: CROTAMITON
     Dosage: UNK,UNK,UNK
     Route: 050
     Dates: start: 20160520
  18. EMLA [Concomitant]
     Active Substance: LIDOCAINE\PRILOCAINE
     Dosage: UNK,UNK,UNK
     Route: 050
     Dates: start: 20160527
  19. NIFEDIPINE [Concomitant]
     Active Substance: NIFEDIPINE
     Dosage: 40 MG
     Route: 048
     Dates: start: 20160928, end: 20170303

REACTIONS (8)
  - Death [Fatal]
  - Blood cholesterol increased [Recovered/Resolved]
  - Constipation [Recovered/Resolved]
  - Diarrhoea [Recovered/Resolved]
  - C-reactive protein increased [Recovered/Resolved]
  - Cough [Recovered/Resolved]
  - Nasopharyngitis [Recovered/Resolved]
  - Nasopharyngitis [Recovered/Resolved]

NARRATIVE: CASE EVENT DATE: 20160620
